FAERS Safety Report 13309929 (Version 1)
Quarter: 2017Q1

REPORT INFORMATION
  Report Type: Spontaneous
  Country: US (occurrence: US)
  Receive Date: 20170308
  Receipt Date: 20170308
  Transmission Date: 20170428
  Serious: Yes (Hospitalization)
  Sender: FDA-Public Use
  Company Number: None

PATIENT
  Age: 49 Year
  Sex: Female

DRUGS (1)
  1. GILENYA [Suspect]
     Active Substance: FINGOLIMOD HYDROCHLORIDE
     Indication: MULTIPLE SCLEROSIS
     Route: 048
     Dates: start: 20161027

REACTIONS (4)
  - Blood pressure increased [None]
  - Antiphospholipid antibodies positive [None]
  - Gastric haemorrhage [None]
  - Blood cholesterol increased [None]

NARRATIVE: CASE EVENT DATE: 20161220
